FAERS Safety Report 25194447 (Version 1)
Quarter: 2025Q2

REPORT INFORMATION
  Report Type: Spontaneous
  Country: US (occurrence: US)
  Receive Date: 20250414
  Receipt Date: 20250414
  Transmission Date: 20250716
  Serious: Yes (Other)
  Sender: COOPERSURGICAL
  Company Number: US-COOPERSURGICAL, INC.-2025CPS002623

PATIENT
  Age: 24 Year
  Sex: Female
  Weight: 68.481 kg

DRUGS (2)
  1. PARAGARD T 380A [Suspect]
     Active Substance: COPPER
     Indication: Contraception
     Route: 015
     Dates: start: 20120622, end: 20150209
  2. WARFARIN [Concomitant]
     Active Substance: WARFARIN
     Dates: start: 201104, end: 202104

REACTIONS (2)
  - Loop electrosurgical excision procedure [Unknown]
  - Pelvic pain [Recovered/Resolved]

NARRATIVE: CASE EVENT DATE: 20150101
